FAERS Safety Report 7435869-X (Version None)
Quarter: 2011Q2

REPORT INFORMATION
  Report Type: 
  Country: None (occurrence: None)
  Receive Date: 20110425
  Receipt Date: 20110330
  Transmission Date: 20111010
  Serious: No
  Sender: FDA-Public Use
  Company Number: US-B.I. PHARMACEUTICALS,INC./RIDGEFIELD-2011-BP-09630BP

PATIENT
  Age: 64 Year
  Sex: Male

DRUGS (4)
  1. FLOMAX [Suspect]
     Indication: BENIGN PROSTATIC HYPERPLASIA
     Dosage: 0.4 MG
     Route: 048
     Dates: start: 20110201
  2. AVACOR [Concomitant]
  3. ATENOLOL [Concomitant]
  4. CLONAZEPAM [Concomitant]

REACTIONS (1)
  - PROCTALGIA [None]
